FAERS Safety Report 16705548 (Version 6)
Quarter: 2019Q4

REPORT INFORMATION
  Report Type: Report from Study
  Country: US (occurrence: US)
  Receive Date: 20190815
  Receipt Date: 20191202
  Transmission Date: 20200122
  Serious: Yes (Hospitalization, Disabling, Other)
  Sender: FDA-Public Use
  Company Number: US-ARBOR PHARMACEUTICALS, LLC-US-2019ARB001213

PATIENT
  Age: 71 Year
  Sex: Male
  Weight: 110.5 kg

DRUGS (11)
  1. CARMUSTINE. [Suspect]
     Active Substance: CARMUSTINE
     Indication: GLIOBLASTOMA MULTIFORME
     Dosage: 6 WAFERS, 7.7 MG EACH, 46.2 MG TOTAL, SINGLE
     Dates: start: 20190731
  2. DECADRON [Concomitant]
     Active Substance: DEXAMETHASONE
     Indication: BRAIN OEDEMA
     Dosage: 10 MG, Q6H
     Route: 042
     Dates: start: 20190731, end: 20190731
  3. DIAMOX                             /00016901/ [Concomitant]
     Active Substance: ACETAZOLAMIDE
     Indication: PSEUDOMENINGOCELE
     Dosage: UNK
  4. KEPPRA [Concomitant]
     Active Substance: LEVETIRACETAM
     Dosage: 1000 MG, BID
     Route: 048
     Dates: start: 20190801, end: 20190801
  5. KEPPRA [Concomitant]
     Active Substance: LEVETIRACETAM
     Dosage: 500 MG, BID
     Route: 048
     Dates: start: 20190802, end: 20190803
  6. DECADRON [Concomitant]
     Active Substance: DEXAMETHASONE
     Dosage: 6 MG, Q6H
     Route: 048
     Dates: start: 20190802, end: 20190805
  7. BACITRACIN. [Concomitant]
     Active Substance: BACITRACIN
     Indication: PRODUCT USED FOR UNKNOWN INDICATION
     Dosage: UNK, SINGLE
     Route: 042
     Dates: start: 20190731, end: 20190731
  8. CEFAZOLIN [Concomitant]
     Active Substance: CEFAZOLIN
     Indication: PRODUCT USED FOR UNKNOWN INDICATION
     Dosage: 2 G, SINGLE
     Route: 042
     Dates: start: 20190731, end: 20190731
  9. CEFAZOLIN [Concomitant]
     Active Substance: CEFAZOLIN
     Dosage: 1 G, Q8HR
     Route: 042
     Dates: start: 20190731, end: 20190801
  10. KEPPRA [Concomitant]
     Active Substance: LEVETIRACETAM
     Indication: SEIZURE
     Dosage: 1000 MG, UNK
     Route: 042
     Dates: start: 20190731, end: 20190731
  11. DECADRON [Concomitant]
     Active Substance: DEXAMETHASONE
     Dosage: 10 MG, Q6H
     Route: 048
     Dates: start: 20190801, end: 20190802

REACTIONS (11)
  - Urinary tract infection [Recovered/Resolved]
  - Aphasia [Recovered/Resolved with Sequelae]
  - Headache [Recovered/Resolved with Sequelae]
  - Malignant neoplasm progression [Recovered/Resolved with Sequelae]
  - Fine motor skill dysfunction [Recovered/Resolved with Sequelae]
  - Confusional state [Recovered/Resolved with Sequelae]
  - Brain oedema [Recovered/Resolved]
  - Aphasia [Recovered/Resolved]
  - Oedema peripheral [Recovered/Resolved]
  - Visual field defect [Recovered/Resolved with Sequelae]
  - Subdural haematoma [Recovered/Resolved with Sequelae]

NARRATIVE: CASE EVENT DATE: 20190801
